FAERS Safety Report 8974002 (Version 1)
Quarter: 2012Q4

REPORT INFORMATION
  Report Type: 
  Country: US (occurrence: US)
  Receive Date: 20121218
  Receipt Date: 20121218
  Transmission Date: 20130627
  Serious: No
  Sender: FDA-Public Use
  Company Number: US-BRISTOL-MYERS SQUIBB COMPANY-16838666

PATIENT
  Age: 36 Year
  Sex: Male

DRUGS (2)
  1. ABILIFY [Suspect]
     Indication: PSYCHOTIC DISORDER
     Dosage: Prescription #: 1176357
     Dates: start: 201205
  2. SEROQUEL [Suspect]

REACTIONS (3)
  - Restlessness [Unknown]
  - Tremor [Unknown]
  - Insomnia [Unknown]
